FAERS Safety Report 6683177-7 (Version None)
Quarter: 2010Q2

REPORT INFORMATION
  Report Type: 
  Country: None (occurrence: None)
  Receive Date: 20100415
  Receipt Date: 20100405
  Transmission Date: 20101027
  Serious: Yes (Other)
  Sender: FDA-Public Use
  Company Number: US-PFIZER INC-2010022096

PATIENT
  Sex: Female
  Weight: 69.4 kg

DRUGS (1)
  1. GLUCOTROL XL [Suspect]
     Indication: TYPE 2 DIABETES MELLITUS
     Dosage: 10 MG, 3X/DAY
     Route: 048
     Dates: start: 20090101

REACTIONS (2)
  - COLON OPERATION [None]
  - MALABSORPTION [None]
